FAERS Safety Report 8481042-6 (Version None)
Quarter: 2012Q3

REPORT INFORMATION
  Report Type: 
  Country: None (occurrence: None)
  Receive Date: 20120702
  Receipt Date: 20120622
  Transmission Date: 20120928
  Serious: Yes (Other)
  Sender: FDA-Public Use
  Company Number: PHEH2012US012481

PATIENT
  Sex: Female

DRUGS (3)
  1. DIOVAN [Suspect]
     Indication: HYPERTENSION
     Dosage: 1 DF, QD (160 MG)
  2. CLONIDINE [Concomitant]
     Dosage: 2 MG, UNK
  3. ALLOPURINOL [Concomitant]

REACTIONS (2)
  - GOUT [None]
  - OEDEMA PERIPHERAL [None]
